FAERS Safety Report 7608362-9 (Version None)
Quarter: 2011Q3

REPORT INFORMATION
  Report Type: 
  Country: None (occurrence: None)
  Receive Date: 20110714
  Receipt Date: 20110708
  Transmission Date: 20111222
  Serious: Yes (Other)
  Sender: FDA-Public Use
  Company Number: US-SHIRE-ALL1-2011-02209

PATIENT
  Sex: Male
  Weight: 61.224 kg

DRUGS (1)
  1. LIALDA [Suspect]
     Indication: COLITIS
     Dosage: 1.2 G, 1X/DAY:QD
     Route: 048
     Dates: start: 20070101

REACTIONS (2)
  - PROSTATE CANCER [None]
  - HAEMATOCHEZIA [None]
